FAERS Safety Report 4926086-3 (Version None)
Quarter: 2006Q1

REPORT INFORMATION
  Report Type: 
  Country: None (occurrence: None)
  Receive Date: 20060228
  Receipt Date: 20050815
  Transmission Date: 20060701
  Serious: No
  Sender: FDA-Public Use
  Company Number: US-GLAXOSMITHKLINE-A0570090A

PATIENT
  Age: 20 Year
  Sex: Female
  Weight: 101 kg

DRUGS (1)
  1. LAMICTAL [Suspect]
     Dosage: 100MG UNKNOWN
     Route: 048
     Dates: start: 20050201

REACTIONS (2)
  - ALOPECIA [None]
  - HYPOTRICHOSIS [None]
